FAERS Safety Report 5852815-0 (Version None)
Quarter: 2008Q3

REPORT INFORMATION
  Report Type: 
  Country: None (occurrence: None)
  Receive Date: 20080821
  Receipt Date: 20080603
  Transmission Date: 20090109
  Serious: No
  Sender: FDA-Public Use
  Company Number: US-BAYER-200812739BCC

PATIENT
  Age: 65 Year
  Sex: Female
  Weight: 64 kg

DRUGS (5)
  1. ALEVE (CAPLET) [Suspect]
     Indication: NECK PAIN
  2. BENADRYL [Concomitant]
     Route: 065
  3. CLARITIN [Concomitant]
     Route: 065
  4. LORAZEPAM [Concomitant]
     Route: 065
  5. SENNA PLUS LAXATIVE [Concomitant]
     Route: 065

REACTIONS (1)
  - LABORATORY TEST ABNORMAL [None]
